FAERS Safety Report 12737544 (Version 6)
Quarter: 2017Q1

REPORT INFORMATION
  Report Type: Report from Study
  Country: CN (occurrence: CN)
  Receive Date: 20160912
  Receipt Date: 20170125
  Transmission Date: 20170428
  Serious: Yes (Hospitalization, Other)
  Sender: FDA-Public Use
  Company Number: CN-GLAXOSMITHKLINE-CN2016130225

PATIENT
  Age: 63 Year
  Sex: Male

DRUGS (4)
  1. SODIUM [Concomitant]
     Active Substance: SODIUM
     Dates: start: 20160909, end: 20160909
  2. LIENAL POLYPEPTIDE INJECTION [Concomitant]
     Indication: IMMUNE SYSTEM DISORDER
     Dates: start: 20160905, end: 20160910
  3. FLUTICASONE FUROATE + VILANTEROL TRIFENATATE [Suspect]
     Active Substance: FLUTICASONE FUROATE\VILANTEROL TRIFENATATE
     Indication: CHRONIC OBSTRUCTIVE PULMONARY DISEASE
     Dosage: 1 PUFF(S), QD
     Route: 055
     Dates: start: 20160303
  4. SODIUM [Concomitant]
     Active Substance: SODIUM
     Indication: ANTACID THERAPY
     Dates: start: 20160911, end: 20160927

REACTIONS (3)
  - Lung neoplasm malignant [Not Recovered/Not Resolved]
  - Asthma [Recovering/Resolving]
  - Chronic obstructive pulmonary disease [Recovering/Resolving]

NARRATIVE: CASE EVENT DATE: 20160826
